FAERS Safety Report 5062826-3 (Version None)
Quarter: 2006Q3

REPORT INFORMATION
  Report Type: 
  Country: None (occurrence: None)
  Receive Date: 20060726
  Receipt Date: 20060721
  Transmission Date: 20061208
  Serious: Yes (Death, Life-Threatening, Hospitalization, Other)
  Sender: FDA-Public Use
  Company Number: FR-MERCK-0607FRA00050

PATIENT
  Age: 37 Year
  Sex: Male
  Weight: 130 kg

DRUGS (2)
  1. COZAAR [Suspect]
     Indication: HYPERTENSION
     Route: 048
     Dates: start: 20051115, end: 20060704
  2. METFORMIN HYDROCHLORIDE [Suspect]
     Indication: DIABETES MELLITUS NON-INSULIN-DEPENDENT
     Route: 048
     Dates: start: 20051115, end: 20060704

REACTIONS (8)
  - CARDIAC ARREST [None]
  - DEATH [None]
  - DISTURBANCE IN ATTENTION [None]
  - HYPERKALAEMIA [None]
  - MELAENA [None]
  - RENAL FAILURE ACUTE [None]
  - VENTRICULAR FIBRILLATION [None]
  - VOMITING [None]
